FAERS Safety Report 18419038 (Version 2)
Quarter: 2020Q4

REPORT INFORMATION
  Report Type: Spontaneous
  Country: PT (occurrence: PT)
  Receive Date: 20201023
  Receipt Date: 20201119
  Transmission Date: 20210114
  Serious: Yes (Hospitalization, Other)
  Sender: FDA-Public Use
  Company Number: PT-ACCORD-206024

PATIENT
  Age: 61 Year
  Sex: Female

DRUGS (5)
  1. BISOPROLOL [Concomitant]
     Active Substance: BISOPROLOL
     Indication: BRADYCARDIA
  2. ALPRAZOLAM. [Concomitant]
     Active Substance: ALPRAZOLAM
  3. OMEPRAZOLE. [Concomitant]
     Active Substance: OMEPRAZOLE
  4. METHOTREXATE. [Suspect]
     Active Substance: METHOTREXATE
     Indication: RHEUMATOID ARTHRITIS
  5. PROPAFENONE. [Concomitant]
     Active Substance: PROPAFENONE
     Indication: BRADYCARDIA

REACTIONS (1)
  - Ovarian adenoma [Recovered/Resolved]
